FAERS Safety Report 21131742 (Version 2)
Quarter: 2022Q3

REPORT INFORMATION
  Report Type: Report from Study
  Country: US (occurrence: None)
  Receive Date: 20220726
  Receipt Date: 20220808
  Transmission Date: 20221027
  Serious: Yes (Hospitalization)
  Sender: FDA-Public Use
  Company Number: US-Ultragenyx Pharmaceutical Inc.-US-UGNX-22-00451

PATIENT
  Age: 29 Year
  Sex: Female

DRUGS (3)
  1. DOJOLVI [Suspect]
     Active Substance: TRIHEPTANOIN
     Indication: Carnitine palmitoyltransferase deficiency
     Dosage: 10 ML ONCE DAILY AT NIGHT, VIA G-TUBE
     Dates: start: 20220125, end: 20220619
  2. DOJOLVI [Suspect]
     Active Substance: TRIHEPTANOIN
     Dosage: 2.5 ML FOUR TIMES DAILY VIA G-TUBE
     Dates: start: 20211209
  3. DOJOLVI [Suspect]
     Active Substance: TRIHEPTANOIN
     Dosage: 10 ML ONCE DAILY, VIA G-TUBE
     Dates: end: 20220720

REACTIONS (5)
  - Device malfunction [Recovered/Resolved]
  - Hospitalisation [Unknown]
  - Medical device site haemorrhage [Unknown]
  - Gastrostomy failure [Unknown]
  - Abdominal pain [Unknown]

NARRATIVE: CASE EVENT DATE: 20220701
